FAERS Safety Report 6516145-6 (Version None)
Quarter: 2009Q4

REPORT INFORMATION
  Report Type: 
  Country: None (occurrence: None)
  Receive Date: 20091223
  Receipt Date: 20091218
  Transmission Date: 20100525
  Serious: Yes (Death)
  Sender: FDA-Public Use
  Company Number: US-AMGEN-US381327

PATIENT
  Sex: Male

DRUGS (2)
  1. NPLATE [Suspect]
     Indication: DRUG USE FOR UNKNOWN INDICATION
     Route: 065
     Dates: start: 20091210
  2. CORTICOSTEROIDS [Concomitant]
     Dates: start: 20091209

REACTIONS (1)
  - CARDIAC FAILURE [None]
